FAERS Safety Report 4367084-0 (Version None)
Quarter: 2004Q2

REPORT INFORMATION
  Report Type: 
  Country: None (occurrence: None)
  Receive Date: 20040528
  Receipt Date: 20020516
  Transmission Date: 20050107
  Serious: Yes (Disabling, Other)
  Sender: FDA-Public Use
  Company Number: US-MERCK-0205USA02063

PATIENT
  Age: 61 Year
  Sex: Male
  Weight: 80 kg

DRUGS (9)
  1. [THERAPY UNSPECIFIED] [Concomitant]
     Indication: PAIN
     Route: 065
     Dates: start: 19710101
  2. ASPIRIN [Concomitant]
     Route: 065
     Dates: start: 20000101
  3. WELLBUTRIN [Concomitant]
     Route: 065
     Dates: start: 19970201
  4. CODEINE [Concomitant]
     Route: 065
  5. LOVASTATIN [Concomitant]
     Route: 065
     Dates: start: 20000101
  6. NAPROXEN [Concomitant]
     Route: 065
     Dates: start: 19950101, end: 19980101
  7. VIOXX [Suspect]
     Indication: ARTHRITIS
     Route: 048
     Dates: end: 20010101
  8. VIOXX [Suspect]
     Route: 065
     Dates: start: 20011001, end: 20020228
  9. VIOXX [Suspect]
     Route: 048

REACTIONS (28)
  - ARRHYTHMIA [None]
  - ARTHRITIS [None]
  - BLINDNESS [None]
  - BLOOD TESTOSTERONE DECREASED [None]
  - BRONCHITIS [None]
  - CHOLECYSTITIS CHRONIC [None]
  - CHOLELITHIASIS [None]
  - DUODENAL SCARRING [None]
  - EMOTIONAL DISTRESS [None]
  - FIBROMYALGIA [None]
  - GASTRITIS [None]
  - GASTROOESOPHAGEAL REFLUX DISEASE [None]
  - HIATUS HERNIA [None]
  - HYPERCHOLESTEROLAEMIA [None]
  - IMPAIRED HEALING [None]
  - MENTAL DISORDER [None]
  - MUSCLE SPASMS [None]
  - MYOCARDIAL INFARCTION [None]
  - NAUSEA [None]
  - NECK PAIN [None]
  - OVERDOSE [None]
  - ROAD TRAFFIC ACCIDENT [None]
  - SKIN LACERATION [None]
  - SPONDYLOARTHROPATHY [None]
  - TYMPANIC MEMBRANE PERFORATION [None]
  - VERTIGO POSITIONAL [None]
  - VISION BLURRED [None]
  - VITREOUS FLOATERS [None]
